FAERS Safety Report 17047681 (Version 1)
Quarter: 2019Q4

REPORT INFORMATION
  Report Type: Spontaneous
  Country: FR (occurrence: FR)
  Receive Date: 20191119
  Receipt Date: 20191119
  Transmission Date: 20200122
  Serious: Yes (Hospitalization, Other)
  Sender: FDA-Public Use
  Company Number: FR-TEVA-2019-FR-1138398

PATIENT
  Age: 25 Year
  Sex: Female

DRUGS (12)
  1. HALOPERIDOL. [Suspect]
     Active Substance: HALOPERIDOL
     Indication: PSYCHOTIC DISORDER
     Dosage: 5 MILLIGRAM DAILY;
     Route: 048
  2. LOXAPINE. [Suspect]
     Active Substance: LOXAPINE
     Indication: AGGRESSION
  3. DIAZEPAM. [Concomitant]
     Active Substance: DIAZEPAM
     Indication: PSYCHOMOTOR HYPERACTIVITY
     Dosage: SINGLE INTRAMUSCULAR ADMINISTRATION OF DIAZEPAM
     Route: 030
  4. DIAZEPAM. [Concomitant]
     Active Substance: DIAZEPAM
     Indication: AGGRESSION
  5. AMISULPRIDE [Suspect]
     Active Substance: AMISULPRIDE
     Indication: PSYCHOTIC DISORDER
     Route: 065
  6. PREDNISOLONE. [Suspect]
     Active Substance: PREDNISOLONE
     Indication: PSYCHOTIC DISORDER
     Dosage: 1 MG/KG DAILY; STARTING DOSE
     Route: 048
  7. LOXAPINE. [Suspect]
     Active Substance: LOXAPINE
     Indication: PSYCHOMOTOR HYPERACTIVITY
     Dosage: SINGLE INTRAMUSCULAR ADMINISTRATION OF LOXAPINE
     Route: 030
  8. METHYLPREDNISOLONE. [Suspect]
     Active Substance: METHYLPREDNISOLONE
     Indication: PSYCHOTIC DISORDER
     Route: 042
  9. CYCLOPHOSPHAMIDE. [Suspect]
     Active Substance: CYCLOPHOSPHAMIDE
     Indication: PSYCHOTIC DISORDER
     Route: 065
  10. VALPROATE [Concomitant]
     Active Substance: VALPROIC ACID
     Indication: MANIA
     Route: 065
  11. HYDROXYCHLOROQUINE [Suspect]
     Active Substance: HYDROXYCHLOROQUINE
     Indication: PSYCHOTIC DISORDER
     Route: 048
  12. TROPATEPINE [Suspect]
     Active Substance: TROPATEPINE
     Indication: EXTRAPYRAMIDAL DISORDER
     Route: 048

REACTIONS (4)
  - Drug ineffective [Unknown]
  - Extrapyramidal disorder [Recovered/Resolved]
  - Pneumonia aspiration [Unknown]
  - Catatonia [Recovered/Resolved]
